FAERS Safety Report 4909946-9 (Version None)
Quarter: 2006Q1

REPORT INFORMATION
  Report Type: 
  Country: None (occurrence: None)
  Receive Date: 20060208
  Receipt Date: 20060127
  Transmission Date: 20060701
  Serious: Yes (Death, Hospitalization)
  Sender: FDA-Public Use
  Company Number: 2006013725

PATIENT
  Age: 58 Year
  Sex: Male
  Weight: 63 kg

DRUGS (2)
  1. MEDROL [Suspect]
     Indication: ILL-DEFINED DISORDER
     Dosage: 1 DF (100 MG), ORAL
     Route: 048
     Dates: start: 20050830, end: 20050923
  2. VALPROIC ACID [Concomitant]

REACTIONS (8)
  - CONDITION AGGRAVATED [None]
  - CONFUSIONAL STATE [None]
  - DIABETES MELLITUS [None]
  - DISORIENTATION [None]
  - GENERAL PHYSICAL HEALTH DETERIORATION [None]
  - HYPONATRAEMIA [None]
  - PULMONARY CONGESTION [None]
  - RESPIRATORY FAILURE [None]
